FAERS Safety Report 24805227 (Version 1)
Quarter: 2025Q1

REPORT INFORMATION
  Report Type: Spontaneous
  Country: NZ (occurrence: NZ)
  Receive Date: 20250103
  Receipt Date: 20250103
  Transmission Date: 20250408
  Serious: Yes (Hospitalization)
  Sender: AMERICAN REGENT
  Company Number: NZ-AMERICAN REGENT INC-2024004872

PATIENT
  Age: 83 Year
  Sex: Female

DRUGS (3)
  1. FERINJECT [Suspect]
     Active Substance: FERRIC CARBOXYMALTOSE
     Indication: Iron deficiency anaemia
  2. FERINJECT [Suspect]
     Active Substance: FERRIC CARBOXYMALTOSE
     Route: 042
     Dates: start: 20200928, end: 20200928
  3. ZOLEDRONIC ACID [Suspect]
     Active Substance: ZOLEDRONIC ACID
     Indication: Prophylaxis
     Route: 042
     Dates: start: 20201004, end: 20201004

REACTIONS (2)
  - Hypocalcaemia [Not Recovered/Not Resolved]
  - Hypophosphataemia [Not Recovered/Not Resolved]
